FAERS Safety Report 10302620 (Version 1)
Quarter: 2014Q3

REPORT INFORMATION
  Report Type: Spontaneous
  Country: US (occurrence: None)
  Receive Date: 20140711
  Receipt Date: 20140711
  Transmission Date: 20150326
  Serious: Yes (Hospitalization)
  Sender: FDA-Public Use
  Company Number: None

PATIENT
  Age: 31 Year
  Sex: Male
  Weight: 76 kg

DRUGS (2)
  1. VENLAFAXINE [Suspect]
     Active Substance: VENLAFAXINE HYDROCHLORIDE
     Indication: DEPRESSION
     Route: 048
     Dates: start: 20140324
  2. PERPHENAZINE. [Suspect]
     Active Substance: PERPHENAZINE
     Indication: ANXIETY
     Route: 048
     Dates: start: 20130618

REACTIONS (4)
  - Tremor [None]
  - Muscle rigidity [None]
  - Dystonia [None]
  - Hyperhidrosis [None]

NARRATIVE: CASE EVENT DATE: 20140523
